FAERS Safety Report 11060389 (Version 3)
Quarter: 2015Q3

REPORT INFORMATION
  Report Type: Spontaneous
  Country: US (occurrence: US)
  Receive Date: 20150423
  Receipt Date: 20150731
  Transmission Date: 20151125
  Serious: Yes (Life-Threatening, Hospitalization, Other)
  Sender: FDA-Public Use
  Company Number: US-SHIONOGI, INC.-2015000489

PATIENT
  Age: 52 Year
  Sex: Female
  Weight: 58.96 kg

DRUGS (9)
  1. VITAMINS                           /90003601/ [Concomitant]
     Active Substance: VITAMINS
     Indication: PRODUCT USED FOR UNKNOWN INDICATION
     Dosage: UNK, DAILY
     Route: 048
  2. OSPHENA [Suspect]
     Active Substance: OSPEMIFENE
     Indication: VULVOVAGINAL DRYNESS
     Dosage: 60 MG, QOD
     Route: 065
     Dates: start: 20140327, end: 20140403
  3. GABAPENTIN. [Concomitant]
     Active Substance: GABAPENTIN
     Indication: PAIN
     Dosage: 100 MG, QD
     Route: 048
     Dates: end: 20150501
  4. COLACE [Concomitant]
     Active Substance: DOCUSATE SODIUM
     Indication: CONSTIPATION
     Dosage: 100 MG, BID
     Route: 065
  5. MIRALAX [Concomitant]
     Active Substance: POLYETHYLENE GLYCOL 3350
     Indication: PRODUCT USED FOR UNKNOWN INDICATION
     Dosage: 17 G, DAILY
     Route: 065
  6. IBUPROFEN. [Concomitant]
     Active Substance: IBUPROFEN
     Indication: PRODUCT USED FOR UNKNOWN INDICATION
     Dosage: 200 MG - 400 MG, PRN
     Route: 048
  7. VICODIN [Concomitant]
     Active Substance: ACETAMINOPHEN\HYDROCODONE BITARTRATE
     Indication: PAIN
     Dosage: UNK
  8. SENOKOT [Concomitant]
     Active Substance: SENNOSIDES
     Indication: PRODUCT USED FOR UNKNOWN INDICATION
     Dosage: 1 TABLET AT BEDTIME
     Route: 065
  9. OSPHENA [Suspect]
     Active Substance: OSPEMIFENE
     Indication: OFF LABEL USE

REACTIONS (18)
  - Hypertension [Recovered/Resolved]
  - Vomiting [Unknown]
  - Tachycardia [Unknown]
  - Off label use [Unknown]
  - Visual acuity reduced [Unknown]
  - Oedema peripheral [Unknown]
  - Blindness unilateral [Unknown]
  - Limb discomfort [Unknown]
  - Nausea [Unknown]
  - Chills [Unknown]
  - Renal infarct [Recovered/Resolved]
  - Abdominal pain [Unknown]
  - Large intestine polyp [Unknown]
  - Headache [Unknown]
  - Abnormal loss of weight [Unknown]
  - Sluggishness [Unknown]
  - Inappropriate schedule of drug administration [Unknown]
  - Constipation [Unknown]

NARRATIVE: CASE EVENT DATE: 201405
